FAERS Safety Report 11096304 (Version 1)
Quarter: 2015Q2

REPORT INFORMATION
  Report Type: Spontaneous
  Country: US (occurrence: US)
  Receive Date: 20150507
  Receipt Date: 20150507
  Transmission Date: 20150821
  Serious: No
  Sender: FDA-Public Use
  Company Number: US-BIOGENIDEC-2015BI057803

PATIENT
  Age: 58 Year
  Sex: Male

DRUGS (14)
  1. PREDNISONE (PAK) [Concomitant]
  2. CENTRUM SILVER [Concomitant]
     Active Substance: VITAMINS
  3. MIRALAX [Concomitant]
     Active Substance: POLYETHYLENE GLYCOL 3350
  4. CYMBALTA [Concomitant]
     Active Substance: DULOXETINE HYDROCHLORIDE
  5. COLACE [Concomitant]
     Active Substance: DOCUSATE SODIUM
  6. ULTRAM ER [Concomitant]
     Active Substance: TRAMADOL HYDROCHLORIDE
  7. TECFIDERA [Suspect]
     Active Substance: DIMETHYL FUMARATE
     Indication: MULTIPLE SCLEROSIS
     Route: 048
  8. BACLOFEN. [Concomitant]
     Active Substance: BACLOFEN
  9. ZIAC [Concomitant]
     Active Substance: BISOPROLOL FUMARATE\HYDROCHLOROTHIAZIDE
  10. LASIX [Concomitant]
     Active Substance: FUROSEMIDE
  11. LORAZEPAM. [Concomitant]
     Active Substance: LORAZEPAM
  12. NEURONTIN [Concomitant]
     Active Substance: GABAPENTIN
  13. POTASSIUM [Concomitant]
     Active Substance: POTASSIUM
  14. VITAMIN D [Concomitant]
     Active Substance: CHOLECALCIFEROL

REACTIONS (1)
  - Weight increased [Unknown]

NARRATIVE: CASE EVENT DATE: 20150215
